FAERS Safety Report 9977203 (Version 1)
Quarter: 2014Q1

REPORT INFORMATION
  Report Type: Report from Study
  Country: US (occurrence: US)
  Receive Date: 20140306
  Receipt Date: 20140306
  Transmission Date: 20141002
  Serious: No
  Sender: FDA-Public Use
  Company Number: US-ABBVIE-13P-163-1165076-00

PATIENT
  Age: 61 Year
  Sex: Female
  Weight: 54.03 kg

DRUGS (3)
  1. HUMIRA [Suspect]
     Indication: CROHN^S DISEASE
     Dates: start: 201306
  2. ATENOLOL [Concomitant]
     Indication: MITRAL VALVE INCOMPETENCE
  3. BENTYL [Concomitant]
     Indication: ABDOMINAL PAIN

REACTIONS (3)
  - Abdominal distension [Not Recovered/Not Resolved]
  - Abdominal pain upper [Not Recovered/Not Resolved]
  - Headache [Not Recovered/Not Resolved]
